FAERS Safety Report 14402724 (Version 4)
Quarter: 2018Q2

REPORT INFORMATION
  Report Type: Spontaneous
  Country: DE (occurrence: DE)
  Receive Date: 20180117
  Receipt Date: 20180622
  Transmission Date: 20180711
  Serious: Yes (Death)
  Sender: FDA-Public Use
  Company Number: DE-OTSUKA-2018_000914

PATIENT
  Age: 31 Year
  Sex: Male

DRUGS (14)
  1. HCT [Concomitant]
     Active Substance: HYDROCHLOROTHIAZIDE
     Indication: OBESITY
  2. ABILIFY [Suspect]
     Active Substance: ARIPIPRAZOLE
     Dosage: SIGNIFICANTLY HIGHER AS 5 MG
     Route: 065
  3. ABILIFY [Suspect]
     Active Substance: ARIPIPRAZOLE
     Dosage: MAXIMUM DOSAGE 10MG/DAY FOR SOME DAYS IN JULY, SINCE THEN 5MG/DAY
     Route: 065
     Dates: start: 201706
  4. AMLODIPINE [Concomitant]
     Active Substance: AMLODIPINE BESYLATE
     Indication: HYPERTENSION
     Dosage: UNK
     Route: 065
     Dates: start: 2012
  5. METFORMIN [Concomitant]
     Active Substance: METFORMIN HYDROCHLORIDE
     Indication: HYPERGLYCAEMIA
     Dosage: UNK
     Route: 065
     Dates: start: 201703
  6. METOPROLOL. [Concomitant]
     Active Substance: METOPROLOL
     Indication: HYPERTENSION
     Dosage: UNK
     Route: 065
     Dates: start: 2008, end: 2009
  7. PANTOPRAZOLE [Concomitant]
     Active Substance: PANTOPRAZOLE
     Indication: DYSPEPSIA
     Dosage: UNK (20-40 MG)
     Route: 065
     Dates: start: 2007
  8. METOPROLOL. [Concomitant]
     Active Substance: METOPROLOL
     Indication: OBESITY
  9. AMLODIPINE [Concomitant]
     Active Substance: AMLODIPINE BESYLATE
     Indication: OBESITY
  10. PANTOPRAZOLE [Concomitant]
     Active Substance: PANTOPRAZOLE
     Indication: GASTROOESOPHAGEAL REFLUX DISEASE
  11. ABILIFY [Suspect]
     Active Substance: ARIPIPRAZOLE
     Indication: SCHIZOPHRENIA
     Dosage: 5 MG, QD
     Route: 065
  12. RAMIPRIL. [Concomitant]
     Active Substance: RAMIPRIL
     Indication: HYPERTENSION
     Dosage: UNK
     Route: 065
     Dates: start: 2008, end: 2009
  13. HCT [Concomitant]
     Active Substance: HYDROCHLOROTHIAZIDE
     Indication: HYPERTENSION
     Dosage: UNK
     Route: 065
     Dates: start: 2012
  14. RAMIPRIL. [Concomitant]
     Active Substance: RAMIPRIL
     Indication: OBESITY
     Dosage: UNK
     Route: 065
     Dates: start: 2012, end: 2015

REACTIONS (8)
  - Underdose [Unknown]
  - Renal disorder [Unknown]
  - Drug intolerance [Unknown]
  - Syncope [Unknown]
  - Adverse event [Unknown]
  - Fatigue [Unknown]
  - Restlessness [Recovered/Resolved]
  - Death [Fatal]

NARRATIVE: CASE EVENT DATE: 20171222
